FAERS Safety Report 19300189 (Version 1)
Quarter: 2021Q2

REPORT INFORMATION
  Report Type: Spontaneous
  Country: JP (occurrence: JP)
  Receive Date: 20210525
  Receipt Date: 20210525
  Transmission Date: 20210717
  Serious: Yes (Hospitalization)
  Sender: FDA-Public Use
  Company Number: JP-ACACIA PHARMA LIMITED-2111919

PATIENT
  Age: 71 Year
  Sex: Male
  Weight: 49.6 kg

DRUGS (9)
  1. SOLULACT [Concomitant]
     Active Substance: CALCIUM CHLORIDE\POTASSIUM CHLORIDE\SODIUM CHLORIDE\SODIUM LACTATE
     Dates: start: 20201026
  2. REMIFENTANIL [Suspect]
     Active Substance: REMIFENTANIL
     Route: 042
     Dates: start: 20201026
  3. SODIUM CHLORIDE. [Concomitant]
     Active Substance: SODIUM CHLORIDE
     Route: 042
     Dates: start: 20201026
  4. MEPIVACAINE [Concomitant]
     Active Substance: MEPIVACAINE HYDROCHLORIDE
     Route: 042
     Dates: start: 20201026
  5. BYFAVO [Suspect]
     Active Substance: REMIMAZOLAM BESYLATE
     Indication: ANAESTHESIA
     Route: 042
     Dates: start: 20201026
  6. OXYGEN. [Concomitant]
     Active Substance: OXYGEN
     Dates: start: 20201026
  7. FENTANYL. [Suspect]
     Active Substance: FENTANYL
     Route: 042
     Dates: start: 20201026
  8. SUPRANE [Suspect]
     Active Substance: DESFLURANE
     Route: 055
     Dates: start: 20201026
  9. ROCURONIUM BROMIDE. [Suspect]
     Active Substance: ROCURONIUM BROMIDE
     Route: 042
     Dates: start: 20201026

REACTIONS (2)
  - Blood pressure decreased [Recovered/Resolved]
  - Respiratory depression [Unknown]

NARRATIVE: CASE EVENT DATE: 20201026
